FAERS Safety Report 12673950 (Version 1)
Quarter: 2016Q3

REPORT INFORMATION
  Report Type: Spontaneous
  Country: KR (occurrence: KR)
  Receive Date: 20160822
  Receipt Date: 20160822
  Transmission Date: 20161109
  Serious: Yes (Other)
  Sender: FDA-Public Use
  Company Number: KR-AMGEN-KORSP2016109962

PATIENT
  Age: 70 Year
  Sex: Male

DRUGS (4)
  1. G-LASTA [Suspect]
     Active Substance: PEGFILGRASTIM
     Dosage: 6 MG, UNK
     Route: 065
     Dates: start: 20150103, end: 20150103
  2. G-LASTA [Suspect]
     Active Substance: PEGFILGRASTIM
     Dosage: 6 MG, UNK
     Route: 065
     Dates: start: 20150128, end: 20150128
  3. G-LASTA [Suspect]
     Active Substance: PEGFILGRASTIM
     Indication: PRODUCT USED FOR UNKNOWN INDICATION
     Dosage: 6 MG, UNK
     Route: 065
     Dates: start: 20141210, end: 20141210
  4. G-LASTA [Suspect]
     Active Substance: PEGFILGRASTIM
     Dosage: 6 MG, UNK
     Route: 065
     Dates: start: 20150218, end: 20150218

REACTIONS (5)
  - Oropharyngeal pain [Unknown]
  - Neutropenia [Unknown]
  - Neutropenia [Unknown]
  - Decreased appetite [Unknown]
  - Muscular weakness [Unknown]

NARRATIVE: CASE EVENT DATE: 20141217
